FAERS Safety Report 25440277 (Version 3)
Quarter: 2025Q3

REPORT INFORMATION
  Report Type: Spontaneous
  Country: US (occurrence: US)
  Receive Date: 20250616
  Receipt Date: 20250908
  Transmission Date: 20251020
  Serious: Yes (Other)
  Sender: CATALYST PHARMA
  Company Number: US-CATALYSTPHARMACEUTICALPARTNERS-US-CATA-25-00820

PATIENT
  Sex: Male

DRUGS (3)
  1. FYCOMPA [Suspect]
     Active Substance: PERAMPANEL
     Indication: Epilepsy
     Dosage: 3 MG ONCE A DAY
     Route: 048
     Dates: start: 202007, end: 202105
  2. FYCOMPA [Suspect]
     Active Substance: PERAMPANEL
     Dosage: 4 MG ONCE DAILY
     Route: 048
     Dates: start: 20210524
  3. FYCOMPA [Suspect]
     Active Substance: PERAMPANEL
     Dosage: 6 MG ONCE A DAY
     Route: 048
     Dates: end: 2025

REACTIONS (5)
  - Seizure [Unknown]
  - Seizure [Unknown]
  - Seizure [Unknown]
  - Seizure [Unknown]
  - Product use issue [Unknown]

NARRATIVE: CASE EVENT DATE: 20250101
